FAERS Safety Report 7120299-0 (Version None)
Quarter: 2010Q4

REPORT INFORMATION
  Report Type: 
  Country: None (occurrence: None)
  Receive Date: 20101123
  Receipt Date: 20101118
  Transmission Date: 20110411
  Serious: Yes (Hospitalization)
  Sender: FDA-Public Use
  Company Number: CH-BRISTOL-MYERS SQUIBB COMPANY-15400534

PATIENT
  Age: 61 Year
  Sex: Male
  Weight: 73 kg

DRUGS (3)
  1. CEFEPIME [Suspect]
     Indication: FEBRILE NEUTROPENIA
     Dosage: DRUG INTERRUPTED AND RESTARTED AT REDUCED DOSE
     Route: 042
  2. MORPHINE SULFATE [Suspect]
  3. MELPHALAN HYDROCHLORIDE [Suspect]
     Indication: MULTIPLE MYELOMA

REACTIONS (3)
  - COGNITIVE DISORDER [None]
  - DRUG LEVEL ABOVE THERAPEUTIC [None]
  - HALLUCINATION [None]
